FAERS Safety Report 8838776 (Version 3)
Quarter: 2012Q4

REPORT INFORMATION
  Report Type: 
  Country: JP (occurrence: JP)
  Receive Date: 20121012
  Receipt Date: 20121110
  Transmission Date: 20130627
  Serious: Yes (Disabling, Other)
  Sender: FDA-Public Use
  Company Number: JP-009507513-1210JPN003369

PATIENT
  Age: 79 Year
  Sex: Male
  Weight: 62 kg

DRUGS (3)
  1. NASONEX [Suspect]
     Indication: RHINITIS ALLERGIC
     Dosage: 100 Microgram, qd
     Route: 045
     Dates: start: 20120427
  2. MICARDIS [Concomitant]
     Dosage: 40 mg, bid
     Route: 048
  3. AMLODIN (AMLODIPINE BESYLATE) [Concomitant]
     Dosage: 5 mg, bid
     Route: 048
     Dates: start: 2002

REACTIONS (2)
  - Hypoaesthesia oral [Not Recovered/Not Resolved]
  - Dysgeusia [Not Recovered/Not Resolved]
